FAERS Safety Report 12014950 (Version 1)
Quarter: 2016Q1

REPORT INFORMATION
  Report Type: Spontaneous
  Country: US (occurrence: US)
  Receive Date: 20160205
  Receipt Date: 20160205
  Transmission Date: 20160526
  Serious: Yes (Other)
  Sender: FDA-Public Use
  Company Number: US-BAYER-2016-015919

PATIENT
  Age: 59 Year
  Sex: Female

DRUGS (2)
  1. BAYER GENUINE ASPIRIN [Suspect]
     Active Substance: ASPIRIN
     Indication: THROMBOSIS PROPHYLAXIS
     Dosage: 1 DF, QD
  2. BAYER GENUINE ASPIRIN [Suspect]
     Active Substance: ASPIRIN
     Indication: THROMBOSIS PROPHYLAXIS
     Dosage: 4 DF, ONCE CHEWED
     Route: 048

REACTIONS (5)
  - Product use issue [None]
  - Off label use [None]
  - Therapeutic response unexpected [None]
  - Myocardial infarction [None]
  - Extra dose administered [None]
